FAERS Safety Report 7973350-X (Version None)
Quarter: 2011Q4

REPORT INFORMATION
  Report Type: 
  Country: None (occurrence: None)
  Receive Date: 20111213
  Receipt Date: 20110707
  Transmission Date: 20120403
  Serious: No
  Sender: FDA-Public Use
  Company Number: US-AMGEN-USASP2011034599

PATIENT
  Sex: Female

DRUGS (1)
  1. ARANESP [Suspect]
     Indication: ESSENTIAL THROMBOCYTHAEMIA
     Dosage: 200 MG, Q2WK
     Dates: start: 20090101

REACTIONS (2)
  - FLUSHING [None]
  - FEELING HOT [None]
